FAERS Safety Report 20404600 (Version 9)
Quarter: 2022Q4

REPORT INFORMATION
  Report Type: Report from Study
  Country: CN (occurrence: None)
  Receive Date: 20220131
  Receipt Date: 20221125
  Transmission Date: 20230112
  Serious: Yes (Death, Hospitalization)
  Sender: FDA-Public Use
  Company Number: CN-ROCHE-3003335

PATIENT
  Age: 60 Year
  Sex: Male
  Weight: 80 kg

DRUGS (19)
  1. OBINUTUZUMAB [Suspect]
     Active Substance: OBINUTUZUMAB
     Indication: Follicular lymphoma
     Dosage: ON 13/JAN/2022, RECEIVED LAST DOSE OF OBINUTUZUMAB PRIOR TO SERIOUS ADVERSE EVENT?C1D1 C1D8?C1D15 C2
     Route: 042
     Dates: start: 20200104
  2. ZANUBRUTINIB [Suspect]
     Active Substance: ZANUBRUTINIB
     Indication: Follicular lymphoma
     Dosage: ON 13/JAN/2022, RECEIVED LAST DOSE OF BGB-3111 PRIOR TO SAE.
     Route: 048
     Dates: start: 20200604
  3. HUMAN RED BLOOD CELL [Concomitant]
     Active Substance: HUMAN RED BLOOD CELL
  4. CHLORPHENIRAMINE [Concomitant]
     Active Substance: CHLORPHENIRAMINE
     Indication: Dermatitis allergic
     Dates: start: 20220210
  5. CHLORPHENIRAMINE [Concomitant]
     Active Substance: CHLORPHENIRAMINE
     Indication: Dermatitis allergic
     Dates: start: 20220215
  6. PROMETHAZINE [Concomitant]
     Active Substance: PROMETHAZINE HYDROCHLORIDE
     Dates: start: 20220210
  7. DEXAMETHASONE [Concomitant]
     Active Substance: DEXAMETHASONE
     Indication: Platelet count increased
     Route: 042
     Dates: start: 20220210
  8. DEXAMETHASONE [Concomitant]
     Active Substance: DEXAMETHASONE
     Indication: Platelet count increased
     Route: 042
     Dates: start: 20220215
  9. STANOZOLOL [Concomitant]
     Active Substance: STANOZOLOL
     Route: 048
     Dates: start: 20220210
  10. TIOPRONIN [Concomitant]
     Active Substance: TIOPRONIN
     Indication: Hepatitis B
  11. HUMAN GRANULOCYTE STIMULATING FACTOR NEEDLE (UNK INGREDIENTS) [Concomitant]
     Dates: start: 20220227
  12. HUMAN GRANULOCYTE STIMULATING FACTOR NEEDLE (UNK INGREDIENTS) [Concomitant]
     Dates: start: 20220228, end: 20220301
  13. THROMBOPOIETIN [Concomitant]
     Active Substance: THROMBOPOIETIN
     Dosage: 15000 UNITS
     Dates: start: 20220227
  14. THROMBOPOIETIN [Concomitant]
     Active Substance: THROMBOPOIETIN
     Dates: start: 20220228, end: 20220301
  15. HYDROCORTISONE SODIUM SUCCINATE [Concomitant]
     Active Substance: HYDROCORTISONE SODIUM SUCCINATE
     Route: 042
     Dates: start: 20220227, end: 20220228
  16. HYDROCORTISONE SODIUM SUCCINATE [Concomitant]
     Active Substance: HYDROCORTISONE SODIUM SUCCINATE
     Route: 042
     Dates: start: 20220228
  17. HUMAN RED BLOOD CELL [Concomitant]
     Active Substance: HUMAN RED BLOOD CELL
     Dosage: 2 UNITS
     Route: 042
     Dates: start: 20220227, end: 20220228
  18. OMEPRAZOLE [Concomitant]
     Active Substance: OMEPRAZOLE
     Route: 042
     Dates: start: 20220228
  19. PLATELETS [Concomitant]
     Active Substance: HUMAN PLATELET, ALLOGENIC
     Route: 042

REACTIONS (4)
  - Myelosuppression [Fatal]
  - Myelodysplastic syndrome [Recovering/Resolving]
  - Thrombocytopenia [Not Recovered/Not Resolved]
  - Haemorrhage [Not Recovered/Not Resolved]

NARRATIVE: CASE EVENT DATE: 20220114
